FAERS Safety Report 23740018 (Version 1)
Quarter: 2024Q2

REPORT INFORMATION
  Report Type: Spontaneous
  Country: CA (occurrence: CA)
  Receive Date: 20240414
  Receipt Date: 20240414
  Transmission Date: 20240715
  Serious: Yes (Hospitalization, Other)
  Sender: FDA-Public Use
  Company Number: CA-TEVA-VS-3181010

PATIENT
  Age: 18 Year
  Sex: Female

DRUGS (2)
  1. FLUOXETINE [Suspect]
     Active Substance: FLUOXETINE HYDROCHLORIDE
     Indication: Product used for unknown indication
     Route: 048
  2. FLUOXETINE [Suspect]
     Active Substance: FLUOXETINE HYDROCHLORIDE
     Indication: Product used for unknown indication
     Route: 048

REACTIONS (7)
  - Agitation [Recovered/Resolved]
  - Anxiety [Recovered/Resolved]
  - Injury [Recovered/Resolved]
  - Intentional overdose [Recovered/Resolved]
  - Intentional self-injury [Recovered/Resolved]
  - Panic attack [Recovered/Resolved]
  - Scar [Recovered/Resolved]
